FAERS Safety Report 25989644 (Version 1)
Quarter: 2025Q4

REPORT INFORMATION
  Report Type: Spontaneous
  Country: US (occurrence: None)
  Receive Date: 20251031
  Receipt Date: 20251031
  Transmission Date: 20260117
  Serious: Yes (Hospitalization)
  Sender: FDA-CTU
  Company Number: None

PATIENT
  Sex: Female

DRUGS (11)
  1. LENALIDOMIDE [Suspect]
     Active Substance: LENALIDOMIDE
     Indication: Plasma cell myeloma
     Dosage: FREQUENCY : DAILY;?
     Route: 048
     Dates: start: 20240112
  2. ASPIRIN CHW 81MG [Concomitant]
  3. BORTEZOMIB INJ 1 MG [Concomitant]
  4. BORTEZOMIB INJ 3.5MG [Concomitant]
  5. BUTALBITAL/ACETAMINOPHEN/ [Concomitant]
  6. CALTRATE 600 CHW +D PLUS [Concomitant]
  7. DARZALEX [Concomitant]
     Active Substance: DARATUMUMAB
  8. DARZALEX [Concomitant]
     Active Substance: DARATUMUMAB
  9. DEXAMETH PHO INJ 1 0MG/ML [Concomitant]
  10. DEXAMETHASONE [Concomitant]
     Active Substance: DEXAMETHASONE
  11. DIFICID TAB 200MG [Concomitant]

REACTIONS (1)
  - Hospitalisation [None]
